FAERS Safety Report 11840965 (Version 1)
Quarter: 2015Q4

REPORT INFORMATION
  Report Type: Spontaneous
  Country: KR (occurrence: KR)
  Receive Date: 20151216
  Receipt Date: 20151216
  Transmission Date: 20160305
  Serious: Yes (Death, Hospitalization)
  Sender: FDA-Public Use
  Company Number: KR-BAYER-2015-482328

PATIENT
  Age: 62 Year
  Sex: Male

DRUGS (1)
  1. STIVARGA [Suspect]
     Active Substance: REGORAFENIB
     Indication: GASTROINTESTINAL STROMAL CANCER
     Dosage: 160 MG, QD
     Route: 048
     Dates: start: 20150720, end: 20150904

REACTIONS (1)
  - Gastrointestinal stromal tumour [Fatal]

NARRATIVE: CASE EVENT DATE: 20151105
